FAERS Safety Report 6139170-6 (Version None)
Quarter: 2009Q2

REPORT INFORMATION
  Report Type: 
  Country: None (occurrence: None)
  Receive Date: 20090401
  Receipt Date: 20090220
  Transmission Date: 20091009
  Serious: Yes (Death, Other)
  Sender: FDA-Public Use
  Company Number: JP-PFIZER INC-2009162808

PATIENT

DRUGS (1)
  1. AZULFIDINE [Suspect]
     Route: 050

REACTIONS (2)
  - ABORTION [None]
  - INTRA-UTERINE DEATH [None]
